FAERS Safety Report 20124782 (Version 1)
Quarter: 2021Q4

REPORT INFORMATION
  Report Type: Spontaneous
  Country: US (occurrence: None)
  Receive Date: 20211126
  Receipt Date: 20211126
  Transmission Date: 20220303
  Serious: Yes (Hospitalization)
  Sender: FDA-Public Use
  Company Number: None

PATIENT
  Age: 72 Year
  Sex: Male
  Weight: 93 kg

DRUGS (1)
  1. WARFARIN [Suspect]
     Active Substance: WARFARIN
     Indication: Pulmonary embolism
     Dates: end: 20211029

REACTIONS (4)
  - Gastrointestinal haemorrhage [None]
  - Anticoagulation drug level above therapeutic [None]
  - Gastric haemorrhage [None]
  - Drug monitoring procedure not performed [None]

NARRATIVE: CASE EVENT DATE: 20211029
